FAERS Safety Report 17167043 (Version 1)
Quarter: 2019Q4

REPORT INFORMATION
  Report Type: Spontaneous
  Country: US (occurrence: US)
  Receive Date: 20191125
  Receipt Date: 20191125
  Transmission Date: 20200122
  Serious: No
  Sender: FDA-Public Use
  Company Number: None

PATIENT
  Age: 36 Year
  Sex: Female

DRUGS (1)
  1. ENBREL [Suspect]
     Active Substance: ETANERCEPT
     Route: 058
     Dates: start: 201806, end: 201807

REACTIONS (3)
  - Joint swelling [None]
  - Therapy non-responder [None]
  - Arthralgia [None]

NARRATIVE: CASE EVENT DATE: 20180716
